FAERS Safety Report 5992665-8 (Version None)
Quarter: 2008Q4

REPORT INFORMATION
  Report Type: 
  Country: None (occurrence: None)
  Receive Date: 20081211
  Receipt Date: 20080524
  Transmission Date: 20090506
  Serious: No
  Sender: FDA-Public Use
  Company Number: US-AMGEN-KDL282212

PATIENT
  Sex: Male

DRUGS (2)
  1. ENBREL [Suspect]
     Indication: RHEUMATOID ARTHRITIS
     Route: 058
     Dates: start: 20080306
  2. METHOTREXATE [Concomitant]
     Dates: start: 20070501

REACTIONS (4)
  - ERYTHEMA [None]
  - INDURATION [None]
  - LOCAL SWELLING [None]
  - PRURITUS [None]
